FAERS Safety Report 9384333 (Version 16)
Quarter: 2017Q3

REPORT INFORMATION
  Report Type: Report from Study
  Country: BR (occurrence: BR)
  Receive Date: 20130705
  Receipt Date: 20170719
  Transmission Date: 20171128
  Serious: Yes (Hospitalization, Other)
  Sender: FDA-Public Use
  Company Number: PHHY2013BR070482

PATIENT
  Sex: Female
  Weight: 84 kg

DRUGS (9)
  1. SANDOSTATIN LAR DEPOT [Suspect]
     Active Substance: OCTREOTIDE ACETATE
     Indication: ACROMEGALY
     Dosage: 20 MG, QMO (EVERY 28 DAYS)
     Route: 030
     Dates: start: 1998
  2. SANDOSTATIN LAR DEPOT [Suspect]
     Active Substance: OCTREOTIDE ACETATE
     Dosage: 20 MG, QMO
     Route: 030
  3. SANDOSTATIN LAR DEPOT [Suspect]
     Active Substance: OCTREOTIDE ACETATE
     Dosage: 20 MG, Q2MO
     Route: 030
  4. PREDNISONE. [Concomitant]
     Active Substance: PREDNISONE
     Indication: PRODUCT USED FOR UNKNOWN INDICATION
     Dosage: 5 MG, QD
     Route: 065
  5. METICORTEN [Concomitant]
     Active Substance: PREDNISONE
     Indication: HYPOTHALAMO-PITUITARY DISORDER
     Dosage: 5 MG, QD
     Route: 048
  6. SANDOSTATIN LAR DEPOT [Suspect]
     Active Substance: OCTREOTIDE ACETATE
     Dosage: 30 MG, QMO
     Route: 030
  7. LEVOTHYROXINE. [Concomitant]
     Active Substance: LEVOTHYROXINE
     Indication: THYROID DISORDER
     Dosage: 28 MG, QD
     Route: 065
  8. PARLODEL [Suspect]
     Active Substance: BROMOCRIPTINE MESYLATE
     Indication: PRODUCT USED FOR UNKNOWN INDICATION
     Dosage: UNK
     Route: 065
  9. SANDOSTATIN LAR DEPOT [Suspect]
     Active Substance: OCTREOTIDE ACETATE
     Dosage: 20 MG, EVERY 45 DAYS
     Route: 030

REACTIONS (29)
  - Fall [Unknown]
  - Thyroid mass [Not Recovered/Not Resolved]
  - Thyroid disorder [Unknown]
  - Hypothyroidism [Unknown]
  - Blood glucose decreased [Unknown]
  - Pain [Unknown]
  - Weight decreased [Unknown]
  - Diabetes mellitus [Unknown]
  - Choking [Unknown]
  - Electrolyte imbalance [Unknown]
  - Feeling abnormal [Unknown]
  - Body height decreased [Unknown]
  - Hormone level abnormal [Recovering/Resolving]
  - Abdominal pain [Unknown]
  - Femur fracture [Unknown]
  - Muscle twitching [Unknown]
  - Gait disturbance [Unknown]
  - Malaise [Unknown]
  - Fatigue [Unknown]
  - Feeding disorder [Unknown]
  - Hyperhidrosis [Unknown]
  - Muscular weakness [Unknown]
  - Weight increased [Unknown]
  - Asthenia [Unknown]
  - Gait inability [Unknown]
  - Pain in extremity [Unknown]
  - Headache [Unknown]
  - Blood growth hormone abnormal [Recovering/Resolving]
  - Inappropriate schedule of drug administration [Unknown]

NARRATIVE: CASE EVENT DATE: 2002
